FAERS Safety Report 6035457-6 (Version None)
Quarter: 2009Q1

REPORT INFORMATION
  Report Type: 
  Country: None (occurrence: None)
  Receive Date: 20090112
  Receipt Date: 20090112
  Transmission Date: 20090719
  Serious: Yes (Other)
  Sender: FDA-Public Use
  Company Number: None

PATIENT
  Age: 54 Year
  Sex: Female
  Weight: 52.1637 kg

DRUGS (3)
  1. COLGATE TOTAL WHITENING COLGATE-PALMOLIVE CORP. NY,NY [Suspect]
     Indication: DENTAL DISORDER PROPHYLAXIS
     Dosage: 1/4 TSP 2 TIMES Q DAY PO
     Route: 048
     Dates: start: 20081101, end: 20081115
  2. COLGATE TOTAL WHITENING COLGATE-PALMOLIVE CORP. NY,NY [Suspect]
     Indication: DENTAL DISORDER PROPHYLAXIS
     Dosage: 1/4 TSP 2 TIMES Q DAY PO
     Route: 048
     Dates: start: 20081201
  3. COLGATE TOTAL WHITENING COLGATE-PALMOLIVE CORP. NY,NY [Suspect]

REACTIONS (3)
  - APHTHOUS STOMATITIS [None]
  - GINGIVAL BLISTER [None]
  - OROPHARYNGEAL BLISTERING [None]
